FAERS Safety Report 9519201 (Version 1)
Quarter: 2013Q1

REPORT INFORMATION
  Report Type: Spontaneous
  Country: US (occurrence: None)
  Receive Date: 20130305
  Receipt Date: 20130305
  Transmission Date: 20140127
  Serious: Yes (Other)
  Sender: FDA-Public Use
  Company Number: 163-21880-12100475

PATIENT
  Age: 71 Year
  Sex: Female
  Weight: 70.99 kg

DRUGS (6)
  1. REVLIMID (LENALIDOMIDE) (25 MILLIGRAM, CAPSULES) [Suspect]
     Indication: PLASMA CELL MYELOMA
     Route: 048
     Dates: start: 20110407, end: 2011
  2. LISINOPRIL (LISINOPRIL) (UNKNOWN) [Concomitant]
  3. ZOMETA (ZOLEDRONIC ACID) (INJECTION) [Concomitant]
  4. ALBUTEROL (SALBUTAMOL) (INHALANT) [Concomitant]
  5. ZOLOFT (SERTRALINE HYDROCHLORIDE) (UNKNOWN) [Concomitant]
  6. ASPIRIN (ACETYLSALICYLIC ACID) (UNKNOWN) (ACETYLSALICYLIC ACID) [Concomitant]

REACTIONS (2)
  - Sinusitis [None]
  - Drug dose omission [None]
